FAERS Safety Report 6120255-5 (Version None)
Quarter: 2009Q1

REPORT INFORMATION
  Report Type: 
  Country: None (occurrence: None)
  Receive Date: 20090312
  Receipt Date: 20090225
  Transmission Date: 20090719
  Serious: Yes (Death, Hospitalization)
  Sender: FDA-Public Use
  Company Number: B0562758A

PATIENT
  Age: 49 Year
  Sex: Male

DRUGS (3)
  1. MELPHALAN (FORMULATION UNKNOWN) (GENERIC) (MELPHALAN) [Suspect]
     Indication: MULTIPLE MYELOMA
  2. CYCLOPHOSPHAMIDE [Suspect]
  3. GRANULOCYTE COL.STIM.FACT [Concomitant]

REACTIONS (15)
  - BACTERAEMIA [None]
  - CELLULITIS [None]
  - DERMATITIS EXFOLIATIVE [None]
  - DIARRHOEA [None]
  - ECZEMA [None]
  - ENGRAFTMENT SYNDROME [None]
  - EOSINOPHILIA [None]
  - EPSTEIN-BARR VIRUS ASSOCIATED LYMPHOPROLIFERATIVE DISORDER [None]
  - GRAFT VERSUS HOST DISEASE [None]
  - HEPATIC FAILURE [None]
  - HEPATIC FIBROSIS [None]
  - HYPOTENSION [None]
  - OEDEMA [None]
  - RASH ERYTHEMATOUS [None]
  - SEPSIS [None]
